FAERS Safety Report 23250493 (Version 1)
Quarter: 2023Q4

REPORT INFORMATION
  Report Type: Report from Study
  Country: US (occurrence: US)
  Receive Date: 20231201
  Receipt Date: 20231201
  Transmission Date: 20240110
  Serious: Yes (Life-Threatening, Hospitalization)
  Sender: FDA-Public Use
  Company Number: US-SERVIER-S23013737

PATIENT

DRUGS (8)
  1. PEGASPARGASE [Suspect]
     Active Substance: PEGASPARGASE
     Indication: B-cell type acute leukaemia
     Dosage: 1900 U, EVERY 2 WEEKS
     Route: 042
     Dates: start: 20220621, end: 20230404
  2. VINCRISTINE [Suspect]
     Active Substance: VINCRISTINE
     Indication: B-cell type acute leukaemia
     Dosage: 2 MG/M2, DAY 1 OF EACH 3-WEEK CYCLE
     Route: 042
     Dates: start: 20220619, end: 20231107
  3. DEXAMETHASONE [Suspect]
     Active Substance: DEXAMETHASONE
     Indication: B-cell type acute leukaemia
     Dosage: 6 MG/M2, DAYS 1-5 OF EACH 3-WEEK CYCLE
     Route: 048
     Dates: start: 20220616, end: 20231111
  4. MERCAPTOPURINE [Suspect]
     Active Substance: MERCAPTOPURINE
     Indication: B-cell type acute leukaemia
     Dosage: 50 MG/M2, DAYS 1-14 OF EACH 3-WEEK CYCLE
     Route: 048
     Dates: start: 20220725, end: 20231113
  5. METHOTREXATE [Suspect]
     Active Substance: METHOTREXATE
     Indication: B-cell type acute leukaemia
     Dosage: 30 MG/M2, DAYS 1, 8 AND 15 OF EACH 3-WEEK CYCLE
     Route: 042
     Dates: start: 20230816, end: 20231107
  6. METHOTREXATE [Suspect]
     Active Substance: METHOTREXATE
     Dosage: 12 MG, AS CLOSE TO EVERY 9 WEEKS X 6 POST-CNS PHASE DOSES AND THEN AS CLOSE TO EVERY 18 WEEKS UNTIL
     Route: 037
     Dates: start: 20220701, end: 20230926
  7. CYTARABINE [Suspect]
     Active Substance: CYTARABINE
     Indication: B-cell type acute leukaemia
     Dosage: 40 MG, AS CLOSE TO EVERY 9 WEEKS X 6 POST-CNS PHASE DOSES AND THEN AS CLOSE TO EVERY 18 WEEKS UNTIL
     Route: 037
     Dates: start: 20220616, end: 20230926
  8. HYDROCORTISONE [Suspect]
     Active Substance: HYDROCORTISONE
     Indication: B-cell type acute leukaemia
     Dosage: 15 MG, AS CLOSE TO EVERY 9 WEEKS X 6 POST-CNS PHASE DOSES AND THEN AS CLOSE TO EVERY 18 WEEKS UNTIL
     Route: 037
     Dates: start: 20220701, end: 20230926

REACTIONS (1)
  - Atrial thrombosis [Unknown]

NARRATIVE: CASE EVENT DATE: 20230801
